FAERS Safety Report 14067273 (Version 3)
Quarter: 2017Q4

REPORT INFORMATION
  Report Type: Spontaneous
  Country: CA (occurrence: CA)
  Receive Date: 20171009
  Receipt Date: 20171103
  Transmission Date: 20180321
  Serious: Yes (Other)
  Sender: FDA-Public Use
  Company Number: CA-SA-2017SA184564

PATIENT
  Age: 63 Year
  Sex: Female

DRUGS (2)
  1. KEVZARA [Suspect]
     Active Substance: SARILUMAB
     Indication: RHEUMATOID ARTHRITIS
     Route: 058
     Dates: start: 20170915
  2. KEVZARA [Suspect]
     Active Substance: SARILUMAB
     Indication: RHEUMATOID ARTHRITIS
     Route: 058
     Dates: start: 20170901, end: 20170901

REACTIONS (6)
  - Arthralgia [Recovered/Resolved]
  - Product storage error [Unknown]
  - Musculoskeletal disorder [Recovered/Resolved]
  - Rheumatoid arthritis [Recovered/Resolved]
  - Hypokinesia [Recovered/Resolved]
  - Bedridden [Unknown]

NARRATIVE: CASE EVENT DATE: 201709
